FAERS Safety Report 21587688 (Version 1)
Quarter: 2022Q4

REPORT INFORMATION
  Report Type: Report from Study
  Country: US (occurrence: US)
  Receive Date: 20221114
  Receipt Date: 20221114
  Transmission Date: 20230112
  Serious: No
  Sender: FDA-Public Use
  Company Number: US-ABBVIE-4165094

PATIENT
  Sex: Female

DRUGS (2)
  1. SKYRIZI [Suspect]
     Active Substance: RISANKIZUMAB-RZAA
     Indication: Psoriasis
     Dosage: 150MG, ?FREQUENCY WEEK 0
  2. SKYRIZI [Suspect]
     Active Substance: RISANKIZUMAB-RZAA
     Dosage: WEEK 4?FREQUENCY WEEK 0, 4 AND EVERY 12 WEEKS

REACTIONS (3)
  - Blister [Unknown]
  - Blood creatinine increased [Unknown]
  - Blood glucose increased [Unknown]
